FAERS Safety Report 10011454 (Version 1)
Quarter: 2014Q1

REPORT INFORMATION
  Report Type: Spontaneous
  Country: US (occurrence: None)
  Receive Date: 20140311
  Receipt Date: 20140311
  Transmission Date: 20141002
  Serious: Yes (Death)
  Sender: FDA-Public Use
  Company Number: DEP_01930_2014

PATIENT
  Sex: Female

DRUGS (1)
  1. LAZANDA [Suspect]

REACTIONS (1)
  - Death [None]
